FAERS Safety Report 21106386 (Version 8)
Quarter: 2024Q1

REPORT INFORMATION
  Report Type: Spontaneous
  Country: US (occurrence: US)
  Receive Date: 20220720
  Receipt Date: 20240131
  Transmission Date: 20240410
  Serious: No
  Sender: FDA-Public Use
  Company Number: US-PFIZER INC-202200979596

PATIENT
  Age: 63 Year
  Sex: Female

DRUGS (1)
  1. INLYTA [Suspect]
     Active Substance: AXITINIB
     Indication: Renal cell carcinoma
     Dosage: 7 MG, 2X/DAY (5 MG TABLET PLUS 2 MG TABLET, EVERY 12 HOURS)
     Route: 048
     Dates: start: 20220519

REACTIONS (8)
  - Headache [Recovering/Resolving]
  - Sneezing [Unknown]
  - Motion sickness [Unknown]
  - Pain [Unknown]
  - Nausea [Unknown]
  - Scratch [Unknown]
  - Tenderness [Not Recovered/Not Resolved]
  - Myalgia [Unknown]
